FAERS Safety Report 7339194-7 (Version None)
Quarter: 2011Q1

REPORT INFORMATION
  Report Type: 
  Country: None (occurrence: None)
  Receive Date: 20110308
  Receipt Date: 20110223
  Transmission Date: 20110831
  Serious: Yes (Hospitalization)
  Sender: FDA-Public Use
  Company Number: PHHY2011US15402

PATIENT
  Sex: Female
  Weight: 56 kg

DRUGS (8)
  1. EXJADE [Suspect]
     Dosage: 1000 MG DAILY
     Route: 048
  2. PENICILLIN [Concomitant]
  3. CANASA [Concomitant]
  4. FOLIC ACID [Concomitant]
  5. EXJADE [Suspect]
     Indication: SICKLE CELL ANAEMIA
     Dosage: 1500 MG, DAILY
     Route: 048
     Dates: start: 20090923
  6. VERAPAMIL [Concomitant]
  7. HYDROCORTISON [Concomitant]
  8. DEPAKOTE [Concomitant]

REACTIONS (3)
  - NAUSEA [None]
  - ADRENOCORTICAL INSUFFICIENCY ACUTE [None]
  - ABDOMINAL PAIN UPPER [None]
